FAERS Safety Report 5792289-1 (Version None)
Quarter: 2008Q2

REPORT INFORMATION
  Report Type: 
  Country: None (occurrence: None)
  Receive Date: 20080626
  Receipt Date: 20080618
  Transmission Date: 20081010
  Serious: Yes (Hospitalization)
  Sender: FDA-Public Use
  Company Number: US-ELI_LILLY_AND_COMPANY-US200806004179

PATIENT
  Sex: Male

DRUGS (4)
  1. HUMULIN 70/30 [Suspect]
     Dosage: 49 U, EACH MORNING
     Dates: start: 20070201
  2. HUMULIN 70/30 [Suspect]
     Dosage: 99 U, EACH EVENING
     Dates: start: 20070201
  3. HUMULIN N [Suspect]
     Dates: end: 20070201
  4. NEURONTIN [Concomitant]
     Indication: NEUROPATHY PERIPHERAL
     Dosage: 600 MG, 4/D

REACTIONS (8)
  - BLOOD GLUCOSE INCREASED [None]
  - BLOOD TRIGLYCERIDES INCREASED [None]
  - LIMB INJURY [None]
  - LIPIDS INCREASED [None]
  - LOWER LIMB FRACTURE [None]
  - PANCREATITIS ACUTE [None]
  - SKIN ULCER [None]
  - WEIGHT BEARING DIFFICULTY [None]
